FAERS Safety Report 14485221 (Version 7)
Quarter: 2018Q4

REPORT INFORMATION
  Report Type: Spontaneous
  Country: US (occurrence: US)
  Receive Date: 20180205
  Receipt Date: 20181218
  Transmission Date: 20190204
  Serious: No
  Sender: FDA-Public Use
  Company Number: US-PFIZER INC-2018045968

PATIENT
  Age: 77 Year
  Sex: Female
  Weight: 73 kg

DRUGS (2)
  1. IBRANCE [Suspect]
     Active Substance: PALBOCICLIB
     Dosage: 100 MG, CYCLIC(DAY 1-21 Q 28 DAYS)
     Route: 048
     Dates: start: 20180305
  2. IBRANCE [Suspect]
     Active Substance: PALBOCICLIB
     Indication: BREAST CANCER METASTATIC
     Dosage: 125 MG, CYCLIC(1-21 Q 28 DAYS)
     Route: 048
     Dates: start: 20180123, end: 2018

REACTIONS (20)
  - Blood glucose increased [Unknown]
  - Pharyngeal disorder [Recovering/Resolving]
  - Oropharyngeal pain [Recovering/Resolving]
  - Fluid retention [Unknown]
  - Swelling [Unknown]
  - Fatigue [Recovering/Resolving]
  - Dysgeusia [Unknown]
  - Feeding disorder [Recovering/Resolving]
  - Product dose omission [Unknown]
  - Asthenia [Recovering/Resolving]
  - Blood potassium decreased [Unknown]
  - Throat irritation [Recovering/Resolving]
  - Speech disorder [Recovering/Resolving]
  - Full blood count decreased [Unknown]
  - Haemoglobin decreased [Recovering/Resolving]
  - Dry mouth [Unknown]
  - Blood test abnormal [Unknown]
  - Dehydration [Unknown]
  - Weight increased [Unknown]
  - Joint swelling [Unknown]

NARRATIVE: CASE EVENT DATE: 2018
